FAERS Safety Report 6585384-0 (Version None)
Quarter: 2010Q1

REPORT INFORMATION
  Report Type: 
  Country: None (occurrence: None)
  Receive Date: 20100217
  Receipt Date: 20100211
  Transmission Date: 20100710
  Serious: Yes (Death)
  Sender: FDA-Public Use
  Company Number: US-GILEAD-2010-0027055

PATIENT
  Weight: 54.4 kg

DRUGS (10)
  1. LETAIRIS [Suspect]
     Indication: PULMONARY ARTERIAL HYPERTENSION
     Route: 048
     Dates: start: 20091118
  2. COREG [Concomitant]
     Indication: HYPERTENSION
  3. LASIX [Concomitant]
     Indication: HYPERTENSION
  4. ALBUTEROL [Concomitant]
  5. ASPIRIN [Concomitant]
     Indication: ISCHAEMIC HEART DISEASE PROPHYLAXIS
  6. IPRATROPIUM [Concomitant]
  7. REVATIO [Concomitant]
  8. POTASSIUM CHLORIDE [Concomitant]
  9. PREDNISONE [Concomitant]
  10. CALCIUM [Concomitant]

REACTIONS (1)
  - DEATH [None]
